FAERS Safety Report 7428403-1 (Version None)
Quarter: 2011Q2

REPORT INFORMATION
  Report Type: 
  Country: None (occurrence: None)
  Receive Date: 20110421
  Receipt Date: 20110407
  Transmission Date: 20111010
  Serious: Yes (Hospitalization)
  Sender: FDA-Public Use
  Company Number: PHHY2011SK28463

PATIENT
  Age: 58 Year
  Sex: Female
  Weight: 68 kg

DRUGS (1)
  1. ACLASTA [Suspect]
     Indication: OSTEOPOROSIS POSTMENOPAUSAL
     Dosage: 5 MG
     Route: 042
     Dates: start: 20110331

REACTIONS (7)
  - ANGINA PECTORIS [None]
  - MYALGIA [None]
  - ARTHRALGIA [None]
  - PYREXIA [None]
  - CHILLS [None]
  - SYNCOPE [None]
  - ASTHENIA [None]
